FAERS Safety Report 15700864 (Version 1)
Quarter: 2018Q4

REPORT INFORMATION
  Report Type: Spontaneous
  Country: US (occurrence: US)
  Receive Date: 20181207
  Receipt Date: 20181207
  Transmission Date: 20190205
  Serious: No
  Sender: FDA-Public Use
  Company Number: US-JUBILANT CADISTA PHARMACEUTICALS-2017JUB00420

PATIENT
  Sex: Female
  Weight: 49.89 kg

DRUGS (4)
  1. METHYLPREDNISOLONE. [Suspect]
     Active Substance: METHYLPREDNISOLONE
     Indication: PAIN
     Dosage: UNK
  2. UNSPECIFIED SUPPLEMENTS [Concomitant]
  3. UNSPECIFIED VITAMINS [Concomitant]
     Active Substance: VITAMINS
  4. METHYLPREDNISOLONE. [Suspect]
     Active Substance: METHYLPREDNISOLONE
     Dosage: UNK, AS DIRECTED ON THE PACKAGE
     Route: 048
     Dates: start: 20171127

REACTIONS (3)
  - Off label use [Unknown]
  - Blood glucose increased [Recovering/Resolving]
  - Abdominal discomfort [Not Recovered/Not Resolved]
